FAERS Safety Report 5945675-0 (Version None)
Quarter: 2008Q4

REPORT INFORMATION
  Report Type: 
  Country: None (occurrence: None)
  Receive Date: 20081107
  Receipt Date: 20081028
  Transmission Date: 20090506
  Serious: Yes (Hospitalization)
  Sender: FDA-Public Use
  Company Number: US-PFIZER INC-2008092486

PATIENT
  Sex: Male
  Weight: 136.1 kg

DRUGS (1)
  1. CHANTIX [Suspect]

REACTIONS (1)
  - DEHYDRATION [None]
